FAERS Safety Report 8950864 (Version 1)
Quarter: 2012Q4

REPORT INFORMATION
  Report Type: Spontaneous
  Country: US (occurrence: None)
  Receive Date: 20121130
  Receipt Date: 20121130
  Transmission Date: 20130627
  Serious: Yes (Other)
  Sender: FDA-Public Use
  Company Number: None

PATIENT
  Age: 54 Year
  Sex: Female
  Weight: 82 kg

DRUGS (1)
  1. GADOBENATE DIMEGLUMINE [Suspect]
     Indication: SCAN WITH CONTRAST
     Route: 040
     Dates: start: 20120801, end: 20120801

REACTIONS (6)
  - Cough [None]
  - Nasal discomfort [None]
  - Dyspnoea [None]
  - Throat tightness [None]
  - Pruritus [None]
  - Wheezing [None]
